FAERS Safety Report 13165532 (Version 5)
Quarter: 2019Q2

REPORT INFORMATION
  Report Type: Spontaneous
  Country: US (occurrence: US)
  Receive Date: 20170131
  Receipt Date: 20190405
  Transmission Date: 20190711
  Serious: Yes (Other)
  Sender: FDA-Public Use
  Company Number: US-ASTRAZENECA-2017SE08277

PATIENT
  Age: 26175 Day
  Sex: Female
  Weight: 83.5 kg

DRUGS (32)
  1. NEXIUM [Suspect]
     Active Substance: ESOMEPRAZOLE MAGNESIUM
     Route: 048
     Dates: start: 1999, end: 2017
  2. PROTONIX [Suspect]
     Active Substance: PANTOPRAZOLE SODIUM
     Dosage: PANTOPRAZOLE (GENERIC)
     Route: 048
     Dates: start: 20150728
  3. ATORVASTATIN [Concomitant]
     Active Substance: ATORVASTATIN
  4. PRILOSEC [Suspect]
     Active Substance: OMEPRAZOLE MAGNESIUM
     Route: 048
     Dates: start: 1999, end: 2017
  5. PROTONIX [Suspect]
     Active Substance: PANTOPRAZOLE SODIUM
     Dosage: PANTOPRAZOLE (WYETH)
     Route: 048
     Dates: start: 1992
  6. NEPHROCAPS [Concomitant]
     Active Substance: ASCORBIC ACID\BIOTIN\CYANOCOBALAMIN\FOLIC ACID\NIACIN\PANTOTHENIC ACID\PYRIDOXINE\RIBOFLAVIN\THIAMINE
  7. NEXIUM [Suspect]
     Active Substance: ESOMEPRAZOLE MAGNESIUM
     Route: 048
     Dates: start: 1992
  8. CLONIDINE. [Concomitant]
     Active Substance: CLONIDINE
  9. COREG [Concomitant]
     Active Substance: CARVEDILOL
  10. GABAPENTIN. [Concomitant]
     Active Substance: GABAPENTIN
  11. CELEXA [Concomitant]
     Active Substance: CITALOPRAM HYDROBROMIDE
  12. PRILOSEC [Suspect]
     Active Substance: OMEPRAZOLE MAGNESIUM
     Route: 048
     Dates: start: 1999, end: 2014
  13. PRILOSEC [Suspect]
     Active Substance: OMEPRAZOLE MAGNESIUM
     Route: 048
     Dates: start: 1992, end: 2014
  14. PREVACID [Suspect]
     Active Substance: LANSOPRAZOLE
     Route: 048
     Dates: start: 1999, end: 2017
  15. CLOPIDOGREL [Concomitant]
     Active Substance: CLOPIDOGREL BISULFATE
  16. ISOSORBIDE. [Concomitant]
     Active Substance: ISOSORBIDE
  17. NEXIUM [Suspect]
     Active Substance: ESOMEPRAZOLE MAGNESIUM
     Route: 048
     Dates: start: 1999, end: 2014
  18. NEXIUM [Suspect]
     Active Substance: ESOMEPRAZOLE MAGNESIUM
     Route: 048
     Dates: start: 1992, end: 2014
  19. PRILOSEC [Suspect]
     Active Substance: OMEPRAZOLE MAGNESIUM
     Route: 048
     Dates: start: 1992
  20. PROTONIX [Suspect]
     Active Substance: PANTOPRAZOLE SODIUM
     Dosage: GENERIC
     Route: 048
     Dates: start: 1999, end: 2017
  21. HYDRALAZINE [Concomitant]
     Active Substance: HYDRALAZINE HYDROCHLORIDE
  22. CARVEDILOL. [Concomitant]
     Active Substance: CARVEDILOL
  23. PROTONIX [Suspect]
     Active Substance: PANTOPRAZOLE SODIUM
     Route: 048
     Dates: start: 1999, end: 2017
  24. ASPIRIN. [Concomitant]
     Active Substance: ASPIRIN
  25. LIPITOR [Concomitant]
     Active Substance: ATORVASTATIN CALCIUM
  26. LOSARTAN. [Concomitant]
     Active Substance: LOSARTAN
  27. CLONIDINE. [Concomitant]
     Active Substance: CLONIDINE
  28. AMLODIPINE [Concomitant]
     Active Substance: AMLODIPINE BESYLATE
  29. PROTONIX [Suspect]
     Active Substance: PANTOPRAZOLE SODIUM
     Dosage: PANTOPRAZOLE (GENERIC)
     Route: 048
     Dates: start: 2000, end: 2017
  30. IMDUR [Concomitant]
     Active Substance: ISOSORBIDE MONONITRATE
  31. CARAFATE [Concomitant]
     Active Substance: SUCRALFATE
  32. CARVEDILOL. [Concomitant]
     Active Substance: CARVEDILOL

REACTIONS (6)
  - End stage renal disease [Unknown]
  - Tubulointerstitial nephritis [Unknown]
  - Chronic kidney disease [Not Recovered/Not Resolved]
  - Nephrogenic anaemia [Unknown]
  - Renal failure [Not Recovered/Not Resolved]
  - Acute kidney injury [Not Recovered/Not Resolved]

NARRATIVE: CASE EVENT DATE: 20140318
